FAERS Safety Report 19818052 (Version 3)
Quarter: 2021Q4

REPORT INFORMATION
  Report Type: Spontaneous
  Country: US (occurrence: None)
  Receive Date: 20210911
  Receipt Date: 20211121
  Transmission Date: 20220303
  Serious: Yes (Death, Other)
  Sender: FDA-Public Use
  Company Number: US-ROCHE-2906044

PATIENT
  Age: 73 Year
  Sex: Female
  Weight: 113 kg

DRUGS (1)
  1. TOCILIZUMAB [Suspect]
     Active Substance: TOCILIZUMAB
     Indication: COVID-19
     Route: 042
     Dates: start: 20210827, end: 20210827

REACTIONS (10)
  - Death [Fatal]
  - Off label use [Unknown]
  - Respiratory disorder [Unknown]
  - Acute kidney injury [Unknown]
  - Ischaemic hepatitis [Unknown]
  - Multiple organ dysfunction syndrome [Unknown]
  - Hepatotoxicity [Unknown]
  - Atrial fibrillation [Unknown]
  - Escherichia bacteraemia [Unknown]
  - Septic shock [Unknown]
